FAERS Safety Report 10260971 (Version 1)
Quarter: 2014Q2

REPORT INFORMATION
  Report Type: Spontaneous
  Country: US (occurrence: US)
  Receive Date: 20140626
  Receipt Date: 20140626
  Transmission Date: 20141212
  Serious: No
  Sender: FDA-Public Use
  Company Number: US-PFIZER INC-2014171958

PATIENT
  Age: 55 Year
  Sex: Female
  Weight: 43.54 kg

DRUGS (29)
  1. NEURONTIN [Suspect]
     Indication: NEUROPATHY PERIPHERAL
     Dosage: UNK
  2. PHRENILIN [Concomitant]
     Dosage: UNK
  3. NORVASC [Concomitant]
     Dosage: UNK
  4. ZOCOR [Concomitant]
     Dosage: UNK
  5. MAXZIDE [Concomitant]
     Dosage: UNK
  6. NEXIUM [Concomitant]
     Dosage: UNK
  7. SUCRALFATE [Concomitant]
     Dosage: UNK
  8. REQUIP [Concomitant]
     Dosage: UNK
  9. PREDNISONE [Concomitant]
     Dosage: UNK
  10. RHINOCORT [Concomitant]
     Dosage: UNK
  11. RESTASIS [Concomitant]
     Dosage: UNK
  12. ULTRAM [Concomitant]
     Dosage: UNK
  13. MOBIC [Concomitant]
     Dosage: UNK
  14. XANAX [Concomitant]
     Dosage: UNK
  15. LORAZEPAM [Concomitant]
     Dosage: UNK
  16. FUROSEMIDE [Concomitant]
     Dosage: UNK
  17. DALIUM [Concomitant]
     Dosage: UNK
  18. KLOR-CON [Concomitant]
     Dosage: UNK
  19. PLAQUENIL [Concomitant]
     Dosage: UNK
  20. METHOTREXATE [Concomitant]
     Dosage: UNK
  21. FOLIC ACID [Concomitant]
     Dosage: UNK
  22. ZOMIG [Concomitant]
     Dosage: UNK
  23. ALBUTEROL [Concomitant]
     Dosage: UNK
  24. VITAMIN D3 [Concomitant]
     Dosage: UNK
  25. CALCIUM [Concomitant]
     Dosage: UNK
  26. VITAMIN B12 [Concomitant]
     Dosage: UNK
  27. VITAMIN E [Concomitant]
     Dosage: UNK
  28. CINNAMON [Concomitant]
     Dosage: UNK
  29. SOMA [Concomitant]
     Dosage: UNK

REACTIONS (2)
  - Drug ineffective [Unknown]
  - Drug hypersensitivity [Unknown]
